FAERS Safety Report 17470364 (Version 2)
Quarter: 2020Q2

REPORT INFORMATION
  Report Type: Spontaneous
  Country: US (occurrence: US)
  Receive Date: 20200228
  Receipt Date: 20200617
  Transmission Date: 20200713
  Serious: Yes (Other)
  Sender: FDA-Public Use
  Company Number: US-CELGENEUS-USA-20200209083

PATIENT
  Age: 79 Year
  Sex: Male

DRUGS (25)
  1. MIRALAX [Concomitant]
     Active Substance: POLYETHYLENE GLYCOL 3350
     Indication: PRODUCT USED FOR UNKNOWN INDICATION
     Route: 065
  2. PERCOCET [Concomitant]
     Active Substance: ACETAMINOPHEN\OXYCODONE HYDROCHLORIDE
     Indication: PRODUCT USED FOR UNKNOWN INDICATION
     Dosage: 5-325 MG
     Route: 048
  3. BACTROBAN [Concomitant]
     Active Substance: MUPIROCIN\MUPIROCIN CALCIUM
     Indication: PRODUCT USED FOR UNKNOWN INDICATION
     Dosage: 4 PERCENT
     Route: 061
  4. BARACLUDE [Concomitant]
     Active Substance: ENTECAVIR
     Indication: PRODUCT USED FOR UNKNOWN INDICATION
     Dosage: .5 MILLIGRAM
     Route: 048
  5. LOPROX [Concomitant]
     Active Substance: CICLOPIROX\CICLOPIROX OLAMINE
     Indication: PRODUCT USED FOR UNKNOWN INDICATION
     Dosage: 1.54 PERCENT
     Route: 065
  6. PHENERGAN [Concomitant]
     Active Substance: PROMETHAZINE HYDROCHLORIDE
     Indication: VOMITING
     Dosage: 6.25 MG /5 ML
     Route: 048
  7. NORVASC [Concomitant]
     Active Substance: AMLODIPINE BESYLATE
     Indication: PRODUCT USED FOR UNKNOWN INDICATION
     Dosage: 2.5 MILLIGRAM
     Route: 048
  8. COMBIGAN [Concomitant]
     Active Substance: BRIMONIDINE TARTRATE\TIMOLOL MALEATE
     Indication: PRODUCT USED FOR UNKNOWN INDICATION
     Dosage: 02-0.5 %
     Route: 047
  9. PEPCID [Concomitant]
     Active Substance: FAMOTIDINE
     Indication: PRODUCT USED FOR UNKNOWN INDICATION
     Dosage: 40 MILLIGRAM
     Route: 048
  10. PERIDEX [Concomitant]
     Active Substance: CHLORHEXIDINE GLUCONATE
     Indication: PRODUCT USED FOR UNKNOWN INDICATION
     Dosage: 15 MLS
     Route: 048
  11. ASPIRIN. [Concomitant]
     Active Substance: ASPIRIN
     Indication: PRODUCT USED FOR UNKNOWN INDICATION
     Dosage: 81 MILLIGRAM
     Route: 048
  12. COREG [Concomitant]
     Active Substance: CARVEDILOL
     Indication: PRODUCT USED FOR UNKNOWN INDICATION
     Dosage: 50 MILLIGRAM
     Route: 048
  13. RITUXIMAB. [Suspect]
     Active Substance: RITUXIMAB
     Indication: MANTLE CELL LYMPHOMA
     Route: 065
  14. COLCRYS [Concomitant]
     Active Substance: COLCHICINE
     Indication: PRODUCT USED FOR UNKNOWN INDICATION
     Dosage: 6 MILLIGRAM
     Route: 048
  15. LAC-HYDRIN [Concomitant]
     Active Substance: AMMONIUM LACTATE
     Indication: PRODUCT USED FOR UNKNOWN INDICATION
     Route: 048
  16. LASIX [Concomitant]
     Active Substance: FUROSEMIDE
     Indication: PRODUCT USED FOR UNKNOWN INDICATION
     Route: 048
  17. FLOMAX [Concomitant]
     Active Substance: TAMSULOSIN HYDROCHLORIDE
     Indication: PRODUCT USED FOR UNKNOWN INDICATION
     Dosage: .4 MILLIGRAM
     Route: 048
  18. NEURONTIN [Concomitant]
     Active Substance: GABAPENTIN
     Indication: PRODUCT USED FOR UNKNOWN INDICATION
     Dosage: 200 MILLIGRAM
     Route: 048
  19. ZOFRAN ODT [Concomitant]
     Active Substance: ONDANSETRON HYDROCHLORIDE
     Indication: VOMITING
     Route: 048
  20. REVLIMID [Suspect]
     Active Substance: LENALIDOMIDE
     Indication: MANTLE CELL LYMPHOMA
     Dosage: 10 MILLIGRAM
     Route: 048
     Dates: start: 201807
  21. LEVAQUIN [Concomitant]
     Active Substance: LEVOFLOXACIN
     Indication: PRODUCT USED FOR UNKNOWN INDICATION
     Dosage: 500 MILLICURIES
     Route: 048
  22. PHENERGAN W/ CODEINE [Concomitant]
     Active Substance: CODEINE PHOSPHATE\PROMETHAZINE HYDROCHLORIDE
     Indication: COUGH
     Dosage: 6.25-10/5 ML
     Route: 048
  23. ZYLOPRIM [Concomitant]
     Active Substance: ALLOPURINOL
     Indication: PRODUCT USED FOR UNKNOWN INDICATION
     Dosage: 100 MILLIGRAM
     Route: 048
  24. ZOCOR [Concomitant]
     Active Substance: SIMVASTATIN
     Indication: PRODUCT USED FOR UNKNOWN INDICATION
     Route: 048
  25. REVLIMID [Suspect]
     Active Substance: LENALIDOMIDE
     Indication: PLASMA CELL MYELOMA
     Dosage: 10 MILLIGRAM
     Route: 048
     Dates: start: 20200111

REACTIONS (1)
  - Venous thrombosis [Recovered/Resolved]

NARRATIVE: CASE EVENT DATE: 202002
